FAERS Safety Report 8887898 (Version 1)
Quarter: 2012Q4

REPORT INFORMATION
  Report Type: Spontaneous
  Country: BR (occurrence: None)
  Receive Date: 20121031
  Receipt Date: 20121031
  Transmission Date: 20130627
  Serious: Yes (Hospitalization)
  Sender: FDA-Public Use
  Company Number: DSJ-2012-19528

PATIENT
  Age: 81 Year
  Sex: Female
  Weight: 22.68 kg

DRUGS (4)
  1. BENICAR HCT [Suspect]
     Indication: HYPERTENSION
     Route: 048
     Dates: start: 201209
  2. LEVOTHYROXINE SODIUM [Concomitant]
  3. SIMVASTATIN [Concomitant]
  4. PANAX GINSENG/VITAMIN A/VITAMIN B1/VITAMIN B2/VITAMIN B6/VITAMIN B12/VITAMIN C/VITAMIN D/VITAMIN E/VITAMIN B3/VITAMIN B5/VITAMIN H/VITAMIN B9/MAGNESIUM/CALCIUM/IRON/COPPER/MANGANESE/ZINC/SELENIUM/SOY (PANAX GINSENG) [Concomitant]

REACTIONS (1)
  - Thrombosis [None]
